FAERS Safety Report 9028698 (Version 3)
Quarter: 2014Q4

REPORT INFORMATION
  Report Type: Report from Study
  Country: AU (occurrence: AU)
  Receive Date: 20130124
  Receipt Date: 20141128
  Transmission Date: 20150529
  Serious: Yes (Hospitalization, Other)
  Sender: FDA-Public Use
  Company Number: PHHY2013AU006554

PATIENT
  Age: 62 Year
  Sex: Female

DRUGS (10)
  1. LYRICA [Concomitant]
     Active Substance: PREGABALIN
     Indication: NEURALGIA
     Dosage: 75 MG, TID
     Route: 048
     Dates: start: 2012
  2. NORSPAN [Concomitant]
     Active Substance: BUPRENORPHINE
     Indication: PAIN
     Dosage: 5 MG, QW (PATCH PER WEEK)
     Route: 048
     Dates: start: 2014
  3. PANADEINE FORTE [Concomitant]
     Active Substance: ACETAMINOPHEN\CODEINE PHOSPHATE
     Indication: PAIN
     Dosage: 2 DF, Q6H, PRN
     Route: 048
     Dates: start: 2010
  4. ACLASTA [Suspect]
     Active Substance: ZOLEDRONIC ACID
     Indication: OSTEOPOROSIS
     Dosage: 5 MG, UNK
     Route: 042
     Dates: start: 20101119
  5. ACLASTA [Suspect]
     Active Substance: ZOLEDRONIC ACID
     Indication: TRAUMATIC FRACTURE
     Dosage: 5 MG, UNK
     Route: 042
  6. AMOXIL//AMOXICILLIN [Concomitant]
     Indication: SPLENECTOMY
     Dosage: 200 MG, QD
     Route: 048
     Dates: start: 2012
  7. COVERSYL//PERINDOPRIL ARGININE [Concomitant]
     Indication: HYPERTENSION
     Dosage: 10 MG, QD
     Route: 048
     Dates: start: 2008
  8. LIPITOR [Concomitant]
     Active Substance: ATORVASTATIN CALCIUM
     Indication: HYPERLIPIDAEMIA
     Dosage: 10 MG, QD
     Route: 048
     Dates: start: 2005
  9. LOVAN [Concomitant]
     Active Substance: FLUOXETINE HYDROCHLORIDE
     Indication: DEPRESSION
     Dosage: 20 MANE (MORNING) 10MG MIDI (MID DAY)
     Route: 048
     Dates: start: 2011
  10. CELEBREX [Concomitant]
     Active Substance: CELECOXIB
     Indication: ARTHRITIS
     Dosage: 200 MG, QD
     Route: 048
     Dates: start: 2000

REACTIONS (4)
  - Neuroendocrine tumour [Unknown]
  - Invasive ductal breast carcinoma [Recovered/Resolved]
  - Pancreatic carcinoma [Recovered/Resolved with Sequelae]
  - Adenoma benign [Unknown]

NARRATIVE: CASE EVENT DATE: 201205
